FAERS Safety Report 20715114 (Version 1)
Quarter: 2022Q2

REPORT INFORMATION
  Report Type: Spontaneous
  Country: US (occurrence: US)
  Receive Date: 20220415
  Receipt Date: 20220415
  Transmission Date: 20220721
  Serious: Yes (Other)
  Sender: FDA-Public Use
  Company Number: US-ELI_LILLY_AND_COMPANY-US202204004789

PATIENT
  Sex: Female

DRUGS (1)
  1. TRULICITY [Suspect]
     Active Substance: DULAGLUTIDE
     Indication: Product used for unknown indication
     Dosage: 0.75 MG, UNKNOWN
     Route: 065
     Dates: start: 202108

REACTIONS (11)
  - Thyroid cancer [Not Recovered/Not Resolved]
  - Goitre [Not Recovered/Not Resolved]
  - Mobility decreased [Unknown]
  - Dysphagia [Unknown]
  - Dyspnoea [Unknown]
  - Illness [Unknown]
  - Wheezing [Unknown]
  - Pain [Unknown]
  - Rectal haemorrhage [Unknown]
  - Fatigue [Unknown]
  - Abdominal discomfort [Unknown]
